FAERS Safety Report 8451461-2 (Version None)
Quarter: 2012Q2

REPORT INFORMATION
  Report Type: 
  Country: None (occurrence: None)
  Receive Date: 20120620
  Receipt Date: 20120301
  Transmission Date: 20120825
  Serious: No
  Sender: FDA-Public Use
  Company Number: US-VERTEX PHARMACEUTICALS INC.-AE-2012-003063

PATIENT
  Sex: Male

DRUGS (7)
  1. TRUVADA [Concomitant]
     Indication: HIV INFECTION
  2. PEGASYS [Concomitant]
     Indication: HEPATITIS C
     Dates: start: 20120104
  3. REYATAZ [Concomitant]
     Indication: HIV INFECTION
     Route: 048
  4. WELLBUTRIN [Concomitant]
  5. INCIVEK [Suspect]
     Indication: HEPATITIS C
     Route: 048
     Dates: start: 20120227
  6. RIBAVIRIN [Concomitant]
     Indication: HEPATITIS C
     Route: 048
     Dates: start: 20120104
  7. NORVIR [Concomitant]
     Indication: HIV INFECTION

REACTIONS (2)
  - FEELING ABNORMAL [None]
  - OFF LABEL USE [None]
